FAERS Safety Report 15270566 (Version 1)
Quarter: 2018Q3

REPORT INFORMATION
  Report Type: Spontaneous
  Country: US (occurrence: US)
  Receive Date: 20180726
  Receipt Date: 20180726
  Transmission Date: 20181010
  Serious: Yes (Death)
  Sender: FDA-Public Use
  Company Number: None

PATIENT
  Age: 78 Year
  Sex: Male
  Weight: 90.72 kg

DRUGS (2)
  1. CAPECITABINE 500 MG [Suspect]
     Active Substance: CAPECITABINE
     Indication: METASTATIC CARCINOID TUMOUR
     Route: 048
     Dates: start: 20180515, end: 20180712
  2. TEMOZOLOMIDE 100 MG [Suspect]
     Active Substance: TEMOZOLOMIDE
     Indication: METASTATIC CARCINOID TUMOUR
     Route: 048
     Dates: start: 20180515, end: 20180712

REACTIONS (1)
  - Death [None]

NARRATIVE: CASE EVENT DATE: 20180712
